FAERS Safety Report 21742982 (Version 1)
Quarter: 2022Q4

REPORT INFORMATION
  Report Type: Report from Study
  Country: DO (occurrence: DO)
  Receive Date: 20221217
  Receipt Date: 20221217
  Transmission Date: 20230113
  Serious: Yes (Hospitalization)
  Sender: FDA-Public Use
  Company Number: DO-JNJFOC-20221225736

PATIENT
  Age: 86 Year
  Sex: Female

DRUGS (1)
  1. IMBRUVICA [Suspect]
     Active Substance: IBRUTINIB
     Indication: Chronic lymphocytic leukaemia
     Route: 048

REACTIONS (6)
  - Cardiac pacemaker insertion [Unknown]
  - Pyrexia [Unknown]
  - Cardiac disorder [Unknown]
  - Dizziness [Unknown]
  - Bradycardia [Unknown]
  - Productive cough [Unknown]

NARRATIVE: CASE EVENT DATE: 20221201
